FAERS Safety Report 13013891 (Version 1)
Quarter: 2016Q4

REPORT INFORMATION
  Report Type: Spontaneous
  Country: CA (occurrence: CA)
  Receive Date: 20161209
  Receipt Date: 20161209
  Transmission Date: 20170207
  Serious: Yes (Other)
  Sender: FDA-Public Use
  Company Number: CA-CELLTRION INC.-2016CA013129

PATIENT

DRUGS (6)
  1. INFLIXIMAB HOSPIRA [Suspect]
     Active Substance: INFLIXIMAB
     Indication: ANKYLOSING SPONDYLITIS
     Dosage: 270 MG
     Route: 042
     Dates: start: 20160811
  2. ATIVAN [Concomitant]
     Active Substance: LORAZEPAM
  3. CELECOXIB. [Concomitant]
     Active Substance: CELECOXIB
     Dosage: UNK
     Dates: start: 2000
  4. TYLENOL WITH CODEINE [Concomitant]
     Active Substance: ACETAMINOPHEN\CODEINE PHOSPHATE
  5. INFLIXIMAB HOSPIRA [Suspect]
     Active Substance: INFLIXIMAB
     Dosage: 270 MG
     Route: 042
     Dates: start: 20160811
  6. CYMBALTA [Concomitant]
     Active Substance: DULOXETINE HYDROCHLORIDE
     Dosage: UNK
     Dates: start: 2015

REACTIONS (3)
  - Hypertension [Unknown]
  - Burns second degree [Recovered/Resolved]
  - Burns third degree [Recovered/Resolved]

NARRATIVE: CASE EVENT DATE: 20161010
